FAERS Safety Report 8451032-8 (Version None)
Quarter: 2012Q2

REPORT INFORMATION
  Report Type: 
  Country: None (occurrence: None)
  Receive Date: 20120620
  Receipt Date: 20120607
  Transmission Date: 20120825
  Serious: Yes (Hospitalization)
  Sender: FDA-Public Use
  Company Number: FR-ROCHE-1076923

PATIENT
  Sex: Male
  Weight: 75 kg

DRUGS (14)
  1. OMIX [Concomitant]
  2. GINKOGINK [Concomitant]
  3. IMODIUM [Concomitant]
  4. ACETAMINOPHEN [Concomitant]
  5. ROFERON-A [Suspect]
     Indication: METASTATIC RENAL CELL CARCINOMA
     Route: 030
     Dates: start: 20090331, end: 20100121
  6. ASPIRIN [Concomitant]
  7. OMEPRAZOLE [Concomitant]
  8. VITAMIN D [Concomitant]
  9. LEXOMIL [Concomitant]
  10. GLUCOPHAGE [Concomitant]
  11. DIPYRIDAMOLE [Concomitant]
  12. AVASTIN [Suspect]
     Indication: METASTATIC RENAL CELL CARCINOMA
     Route: 042
     Dates: start: 20090331, end: 20100118
  13. EZETIMIBE [Concomitant]
  14. MOTILIUM-M [Concomitant]
     Dosage: DRUG REPORTED AS MOTILIUM

REACTIONS (4)
  - DECREASED APPETITE [None]
  - CONFUSIONAL STATE [None]
  - AMNESIA [None]
  - HYPOGLYCAEMIA [None]
